FAERS Safety Report 7806210-5 (Version None)
Quarter: 2011Q4

REPORT INFORMATION
  Report Type: 
  Country: None (occurrence: None)
  Receive Date: 20111007
  Receipt Date: 20111007
  Transmission Date: 20120403
  Serious: Yes (Hospitalization, Disabling, Other)
  Sender: FDA-Public Use
  Company Number: None

PATIENT
  Sex: Female
  Weight: 64 kg

DRUGS (2)
  1. ZOLOFT [Suspect]
     Indication: DEPRESSION
     Dosage: 150 MG 1 1/2 A DAY
     Dates: start: 20080428
  2. SERTRALINE HYDROCHLORIDE [Suspect]
     Dates: start: 20110717

REACTIONS (6)
  - MUSCULOSKELETAL STIFFNESS [None]
  - DYSKINESIA [None]
  - IMPAIRED WORK ABILITY [None]
  - GAIT DISTURBANCE [None]
  - URTICARIA [None]
  - FATIGUE [None]
